FAERS Safety Report 15823600 (Version 3)
Quarter: 2019Q3

REPORT INFORMATION
  Report Type: Spontaneous
  Country: US (occurrence: US)
  Receive Date: 20190114
  Receipt Date: 20190829
  Transmission Date: 20191004
  Serious: No
  Sender: FDA-Public Use
  Company Number: US-PFIZER INC-2019015642

PATIENT
  Age: 85 Year
  Sex: Female

DRUGS (9)
  1. LYRICA [Suspect]
     Active Substance: PREGABALIN
     Indication: POST HERPETIC NEURALGIA
     Dosage: 25 MG, 1X/DAY
     Route: 048
  2. LYRICA [Suspect]
     Active Substance: PREGABALIN
     Indication: DISTURBANCE IN ATTENTION
  3. LYRICA [Suspect]
     Active Substance: PREGABALIN
     Indication: ATTENTION DEFICIT/HYPERACTIVITY DISORDER
  4. LYRICA [Suspect]
     Active Substance: PREGABALIN
     Indication: DEPRESSION
  5. LYRICA [Suspect]
     Active Substance: PREGABALIN
     Indication: PARAESTHESIA
     Dosage: 1-3 CAPSULES NIGHTLY
     Route: 048
  6. LYRICA [Suspect]
     Active Substance: PREGABALIN
     Indication: TRANSIENT ISCHAEMIC ATTACK
  7. LYRICA [Suspect]
     Active Substance: PREGABALIN
     Indication: CEREBRAL INFARCTION
  8. LYRICA [Suspect]
     Active Substance: PREGABALIN
     Indication: COGNITIVE DISORDER
  9. LYRICA [Suspect]
     Active Substance: PREGABALIN
     Indication: NICOTINE DEPENDENCE

REACTIONS (2)
  - Withdrawal syndrome [Unknown]
  - Product dose omission [Unknown]
